FAERS Safety Report 15484556 (Version 1)
Quarter: 2018Q4

REPORT INFORMATION
  Report Type: Spontaneous
  Country: US (occurrence: US)
  Receive Date: 20181010
  Receipt Date: 20181010
  Transmission Date: 20190205
  Serious: Yes (Other)
  Sender: FDA-Public Use
  Company Number: US-BECTON DICKINSON-2018BDN00371

PATIENT

DRUGS (2)
  1. SOAP [Concomitant]
     Active Substance: SOAP
     Route: 061
  2. POVIDONE-IODINE. [Suspect]
     Active Substance: POVIDONE-IODINE
     Indication: ANTIBIOTIC PROPHYLAXIS
     Dosage: UNK, 1X/DAY (PAINTED A 2.5-CM CIRCLE AROUND THE CATHETER)
     Route: 061

REACTIONS (2)
  - Catheter site erosion [Unknown]
  - Peritoneal dialysis complication [Unknown]
